FAERS Safety Report 8318714-X (Version None)
Quarter: 2012Q2

REPORT INFORMATION
  Report Type: 
  Country: None (occurrence: None)
  Receive Date: 20120427
  Receipt Date: 20120423
  Transmission Date: 20120825
  Serious: Yes (Other)
  Sender: FDA-Public Use
  Company Number: US-ASTRAZENECA-2011SE76209

PATIENT
  Age: 62 Year
  Sex: Female

DRUGS (2)
  1. CRESTOR [Suspect]
     Route: 048
  2. NEXIUM [Suspect]
     Route: 048

REACTIONS (3)
  - OSTEOPOROSIS [None]
  - NEOPLASM MALIGNANT [None]
  - BENIGN RENAL NEOPLASM [None]
